FAERS Safety Report 11835235 (Version 1)
Quarter: 2015Q4

REPORT INFORMATION
  Report Type: Spontaneous
  Country: KR (occurrence: KR)
  Receive Date: 20151215
  Receipt Date: 20151215
  Transmission Date: 20160305
  Serious: Yes (Hospitalization)
  Sender: FDA-Public Use
  Company Number: KR-AMGEN-KORCT2015133305

PATIENT
  Age: 64 Year
  Sex: Female
  Weight: 65.8 kg

DRUGS (11)
  1. G-LASTA [Suspect]
     Active Substance: PEGFILGRASTIM
     Dosage: 6 MG, Q3WK
     Route: 058
     Dates: start: 20151129, end: 20151129
  2. DOCETAXEL. [Concomitant]
     Active Substance: DOCETAXEL
     Dosage: 115 MG, UNK
     Route: 042
     Dates: start: 20151128, end: 20151128
  3. G-LASTA [Suspect]
     Active Substance: PEGFILGRASTIM
     Indication: FEBRILE NEUTROPENIA
     Dosage: 6 MG, Q3WK
     Route: 058
     Dates: start: 20151108, end: 20151108
  4. DOXORUBICIN [Concomitant]
     Active Substance: DOXORUBICIN
     Dosage: 76 MG, UNK
     Route: 042
     Dates: start: 20151107, end: 20151107
  5. DOXORUBICIN [Concomitant]
     Active Substance: DOXORUBICIN
     Dosage: 76 MG, UNK
     Route: 042
     Dates: start: 20151128, end: 20151128
  6. TOBRAMYCIN. [Concomitant]
     Active Substance: TOBRAMYCIN
     Dosage: 200 MG, UNK
     Route: 042
     Dates: start: 20151113, end: 20151114
  7. FILGRASTIM [Concomitant]
     Active Substance: FILGRASTIM
     Dosage: 150 MUG, UNK
     Route: 058
     Dates: start: 20151113, end: 20151114
  8. CYCLOPHOSPHAMIDE. [Concomitant]
     Active Substance: CYCLOPHOSPHAMIDE
     Dosage: 765 MG, UNK
     Route: 042
     Dates: start: 20151128, end: 20151128
  9. CYCLOPHOSPHAMIDE. [Concomitant]
     Active Substance: CYCLOPHOSPHAMIDE
     Dosage: 765 MG, UNK
     Route: 042
     Dates: start: 20151107, end: 20151107
  10. CEFOBACTAM [Concomitant]
     Dosage: 2 G, UNK
     Route: 042
     Dates: start: 20151113, end: 20151114
  11. DOCETAXEL. [Concomitant]
     Active Substance: DOCETAXEL
     Dosage: 115 MG, UNK
     Route: 042
     Dates: start: 20151107, end: 20151107

REACTIONS (1)
  - Neutropenia [Recovered/Resolved]

NARRATIVE: CASE EVENT DATE: 20151204
